FAERS Safety Report 7280842-8 (Version None)
Quarter: 2011Q1

REPORT INFORMATION
  Report Type: 
  Country: None (occurrence: None)
  Receive Date: 20110208
  Receipt Date: 20110208
  Transmission Date: 20110831
  Serious: Yes (Death, Hospitalization)
  Sender: FDA-Public Use
  Company Number: JP-JNJFOC-20101208631

PATIENT
  Age: 77 Year
  Sex: Male

DRUGS (5)
  1. DUROTEP MT [Suspect]
     Indication: CANCER PAIN
     Dosage: 12.5-125UG/HR
     Route: 062
  2. PIPAMPERONE HYDROCHLORIDE [Concomitant]
     Dosage: 20-60 MG
     Route: 048
  3. QUETIAPINE FUMARATE [Concomitant]
     Dosage: 25 - 100 MG
     Route: 048
  4. OXYCODONE HCL [Suspect]
     Indication: CANCER PAIN
     Route: 065
  5. ACETAMINOPHEN [Concomitant]
     Dosage: 1200 - 1600 MG
     Route: 065

REACTIONS (4)
  - DELIRIUM [None]
  - PAIN [None]
  - URETERIC CANCER [None]
  - AGGRESSION [None]
